FAERS Safety Report 5105757-2 (Version None)
Quarter: 2006Q3

REPORT INFORMATION
  Report Type: 
  Country: None (occurrence: None)
  Receive Date: 20060915
  Receipt Date: 20060907
  Transmission Date: 20061208
  Serious: Yes (Other)
  Sender: FDA-Public Use
  Company Number: GB-BRISTOL-MYERS SQUIBB COMPANY-13502596

PATIENT
  Sex: Female

DRUGS (2)
  1. ABILIFY [Suspect]
  2. OLANZAPINE [Concomitant]

REACTIONS (1)
  - PSYCHOTIC DISORDER [None]
